FAERS Safety Report 10041922 (Version 1)
Quarter: 2014Q1

REPORT INFORMATION
  Report Type: Report from Study
  Country: UZ (occurrence: UZ)
  Receive Date: 20140327
  Receipt Date: 20140327
  Transmission Date: 20141002
  Serious: Yes (Death, Other)
  Sender: FDA-Public Use
  Company Number: PHHY2014UZ036852

PATIENT
  Age: 51 Year
  Sex: Male

DRUGS (1)
  1. GLIVEC [Suspect]
     Indication: ACUTE LYMPHOCYTIC LEUKAEMIA
     Dosage: 600 MG, UNK

REACTIONS (3)
  - Blast crisis in myelogenous leukaemia [Unknown]
  - Drug resistance [Unknown]
  - Death [Fatal]
